FAERS Safety Report 7049330-8 (Version None)
Quarter: 2010Q4

REPORT INFORMATION
  Report Type: 
  Country: None (occurrence: None)
  Receive Date: 20101018
  Receipt Date: 20100514
  Transmission Date: 20110411
  Serious: No
  Sender: FDA-Public Use
  Company Number: A0859770A

PATIENT
  Age: 53 Year
  Sex: Male

DRUGS (4)
  1. CEFTIN [Suspect]
     Indication: LYME DISEASE
     Route: 048
     Dates: start: 20100415
  2. LARIAM [Concomitant]
  3. METRONIDAZOLE [Concomitant]
  4. ZITHROMAX [Concomitant]

REACTIONS (2)
  - PHOTOPSIA [None]
  - TOOTH DISCOLOURATION [None]
